FAERS Safety Report 11137536 (Version 1)
Quarter: 2015Q2

REPORT INFORMATION
  Report Type: Spontaneous
  Country: US (occurrence: US)
  Receive Date: 20150526
  Receipt Date: 20150526
  Transmission Date: 20150821
  Serious: No
  Sender: FDA-Public Use
  Company Number: US-BAYER-2015-254399

PATIENT
  Sex: Female

DRUGS (1)
  1. ALEVE [Suspect]
     Active Substance: NAPROXEN SODIUM
     Indication: PAIN
     Dosage: UNK DF, UNK

REACTIONS (6)
  - Hypoaesthesia [Unknown]
  - Feeling abnormal [Unknown]
  - Migraine [Unknown]
  - Therapeutic response unexpected [Unknown]
  - Headache [None]
  - Photophobia [Unknown]
